FAERS Safety Report 6354368-X (Version None)
Quarter: 2009Q3

REPORT INFORMATION
  Report Type: 
  Country: None (occurrence: None)
  Receive Date: 20090914
  Receipt Date: 20090831
  Transmission Date: 20100115
  Serious: Yes (Other)
  Sender: FDA-Public Use
  Company Number: US-BIOGENIDEC-165093

PATIENT
  Age: 37 Year
  Sex: Female
  Weight: 43 kg

DRUGS (9)
  1. AVONEX [Suspect]
     Indication: MULTIPLE SCLEROSIS
     Route: 030
     Dates: start: 20000101, end: 20030101
  2. BIRTH CONTROL PILLS (NOS) [Concomitant]
     Indication: CONTRACEPTION
  3. NEURONTIN [Concomitant]
     Indication: PAIN
     Dates: end: 20020801
  4. BACLOFEN [Concomitant]
     Indication: MUSCLE SPASTICITY
     Dates: end: 20020601
  5. VALIUM [Concomitant]
     Indication: MUSCLE SPASTICITY
     Dates: end: 20020601
  6. VIOXX [Concomitant]
     Indication: PAIN
     Dates: end: 20020601
  7. TOPAMAX [Concomitant]
  8. CELEXA [Concomitant]
  9. IMITREX [Concomitant]

REACTIONS (7)
  - ACNE [None]
  - ALOPECIA [None]
  - HEPATITIS [None]
  - LYMPHADENOPATHY [None]
  - MENSTRUATION IRREGULAR [None]
  - MULTIPLE SCLEROSIS [None]
  - PAIN [None]
